FAERS Safety Report 5972035-9 (Version None)
Quarter: 2008Q4

REPORT INFORMATION
  Report Type: 
  Country: None (occurrence: None)
  Receive Date: 20081125
  Receipt Date: 20081107
  Transmission Date: 20090506
  Serious: Yes (Hospitalization)
  Sender: FDA-Public Use
  Company Number: 2008002933

PATIENT
  Sex: Male
  Weight: 62.4 kg

DRUGS (16)
  1. ERLOTINIB (ERLOTINIB HCL) (TABLET) (ERLOTINIB HCL) [Suspect]
     Indication: METASTATIC MALIGNANT MELANOMA
     Dosage: (150 MG, QD), ORAL
     Route: 048
     Dates: start: 20080723, end: 20081026
  2. ERLOTINIB (ERLOTINIB HCL) (TABLET) (ERLOTINIB HCL) [Suspect]
     Indication: METASTATIC MALIGNANT MELANOMA
     Dosage: (150 MG, QD), ORAL
     Route: 048
     Dates: start: 20081104, end: 20081106
  3. OSI-930 [Suspect]
     Dosage: (400 MG, BID), ORAL; (200 MG, BID), ORAL
     Route: 048
     Dates: start: 20080716, end: 20080818
  4. OSI-930 [Suspect]
     Dosage: (400 MG, BID), ORAL; (200 MG, BID), ORAL
     Route: 048
     Dates: start: 20080826, end: 20081106
  5. QUININE SULFATE (QUININE SULFATE) [Concomitant]
  6. CELLUVISC EYE DROPS [Concomitant]
  7. LACRI-LUBE OINTMENT [Concomitant]
  8. SODIUM CROMOGLYCATE [Concomitant]
  9. ASPIRIN [Concomitant]
  10. SIMVASTATIN [Concomitant]
  11. BISOPROLOL FUMARATE [Concomitant]
  12. MEGACE [Concomitant]
  13. LOPERAMIDE [Concomitant]
  14. CORSODYL MOUTHWASH [Concomitant]
  15. DIHYDROCODEINE COMPOUND [Concomitant]
  16. CHLORAMPHENICOL [Concomitant]

REACTIONS (2)
  - OCULAR TOXICITY [None]
  - ULCERATIVE KERATITIS [None]
